FAERS Safety Report 4303911-0 (Version None)
Quarter: 2004Q1

REPORT INFORMATION
  Report Type: 
  Country: None (occurrence: None)
  Receive Date: 20040225
  Receipt Date: 20040216
  Transmission Date: 20041129
  Serious: Yes (Disabling)
  Sender: FDA-Public Use
  Company Number: JP-BRISTOL-MYERS SQUIBB COMPANY-12508867

PATIENT
  Sex: Female

DRUGS (1)
  1. TAXOL [Suspect]
     Indication: BREAST CANCER
     Dosage: THERAPY DATES: JUN-2003 TO DEC-2003
     Route: 042
     Dates: start: 20031201, end: 20031201

REACTIONS (1)
  - MONOPLEGIA [None]
